FAERS Safety Report 4929102-8 (Version None)
Quarter: 2006Q1

REPORT INFORMATION
  Report Type: 
  Country: None (occurrence: None)
  Receive Date: 20060301
  Receipt Date: 20060202
  Transmission Date: 20060701
  Serious: Yes (Hospitalization)
  Sender: FDA-Public Use
  Company Number: US-MERCK-0602USA01719

PATIENT
  Age: 57 Year
  Sex: Male
  Weight: 123 kg

DRUGS (2)
  1. VIOXX [Suspect]
     Indication: BACK PAIN
     Route: 048
     Dates: start: 20010727, end: 20041001
  2. VIOXX [Suspect]
     Indication: NECK PAIN
     Route: 048
     Dates: start: 20010727, end: 20041001

REACTIONS (2)
  - CEREBROVASCULAR ACCIDENT [None]
  - OVERDOSE [None]
